FAERS Safety Report 7573156-X (Version None)
Quarter: 2011Q2

REPORT INFORMATION
  Report Type: 
  Country: None (occurrence: None)
  Receive Date: 20110627
  Receipt Date: 20110624
  Transmission Date: 20111010
  Serious: Yes (Hospitalization)
  Sender: FDA-Public Use
  Company Number: GB-BRISTOL-MYERS SQUIBB COMPANY-14922041

PATIENT
  Age: 58 Year
  Sex: Female

DRUGS (8)
  1. CYCLIZINE [Concomitant]
     Indication: VOMITING
     Route: 048
     Dates: start: 20090101
  2. BUTRANS [Concomitant]
     Indication: ANALGESIC THERAPY
     Route: 048
     Dates: start: 20070101
  3. ACETAMINOPHEN AND CODEINE PHOSPHATE [Concomitant]
     Indication: ANALGESIC THERAPY
     Dosage: 1DOSAGEFORM=30/500 UNITS NOS
     Route: 048
  4. SERTRALINE [Concomitant]
     Indication: ANTIDEPRESSANT THERAPY
     Route: 048
     Dates: start: 20060101
  5. CALCICHEW [Concomitant]
     Indication: OSTEOPOROSIS
     Dosage: 2DOSAGEFORM-2TABS
     Route: 048
     Dates: start: 20080101
  6. ALLOPURINOL [Concomitant]
     Indication: TUMOUR LYSIS SYNDROME
     Route: 048
     Dates: start: 20090516
  7. SPRYCEL [Suspect]
     Indication: CHRONIC MYELOID LEUKAEMIA
     Dosage: INTERRUPTED ON 20DEC09,RESTARTED ON 24DEC09
     Route: 048
     Dates: start: 20091124
  8. ORAMORPH SR [Concomitant]
     Indication: ANALGESIC THERAPY
     Route: 048
     Dates: start: 20091002

REACTIONS (3)
  - DIARRHOEA [None]
  - ABDOMINAL DISCOMFORT [None]
  - DEHYDRATION [None]
